FAERS Safety Report 18947923 (Version 2)
Quarter: 2023Q1

REPORT INFORMATION
  Report Type: Spontaneous
  Country: IN (occurrence: IN)
  Receive Date: 20210226
  Receipt Date: 20230316
  Transmission Date: 20230418
  Serious: Yes (Other)
  Sender: FDA-Public Use
  Company Number: IN-MLMSERVICE-20210205-2708401-1

PATIENT
  Age: 40 Year
  Sex: Male

DRUGS (4)
  1. DEXAMETHASONE [Suspect]
     Active Substance: DEXAMETHASONE
     Indication: Dermatomyositis
     Dosage: 1 MG/KG/DAY PREDNISOLONE EQUIVALENT
     Route: 042
  2. DEXAMETHASONE [Suspect]
     Active Substance: DEXAMETHASONE
     Dosage: REDUCED TO 0.5 MG/KG/DAY OF PREDNISOLONE EQUIVALENT
     Route: 042
  3. METHYLPREDNISOLONE [Suspect]
     Active Substance: METHYLPREDNISOLONE
     Indication: Dermatomyositis
     Route: 065
  4. METHYLPREDNISOLONE [Suspect]
     Active Substance: METHYLPREDNISOLONE
     Dosage: PULSE
     Route: 065

REACTIONS (2)
  - Glomerulonephritis [Recovering/Resolving]
  - Staphylococcal infection [Recovering/Resolving]
